FAERS Safety Report 8464302-4 (Version None)
Quarter: 2012Q2

REPORT INFORMATION
  Report Type: 
  Country: None (occurrence: None)
  Receive Date: 20120625
  Receipt Date: 20120618
  Transmission Date: 20120825
  Serious: Yes (Other)
  Sender: FDA-Public Use
  Company Number: US-RB-039147-12

PATIENT
  Age: 53 Year
  Sex: Male

DRUGS (5)
  1. SUBOXONE [Suspect]
     Dosage: UNKNOWN UNIT DOSE AND DAILY DOSAGE
     Route: 060
     Dates: start: 20120401
  2. SUBOXONE [Suspect]
     Indication: DRUG DEPENDENCE
     Route: 060
     Dates: start: 20110101, end: 20120301
  3. SUBOXONE [Suspect]
     Indication: DRUG DEPENDENCE
     Route: 065
     Dates: start: 20110101, end: 20120301
  4. SUBOXONE [Suspect]
     Dosage: VARIOUS DOSES
     Route: 060
     Dates: start: 20120401
  5. INSULIN [Concomitant]
     Indication: DIABETES MELLITUS
     Dosage: UNKNOWN DOSAGE DETAILS
     Route: 065

REACTIONS (5)
  - SUBSTANCE ABUSE [None]
  - UNDERDOSE [None]
  - SUICIDAL IDEATION [None]
  - DRUG WITHDRAWAL SYNDROME [None]
  - INSOMNIA [None]
